FAERS Safety Report 9445178 (Version 1)
Quarter: 2013Q3

REPORT INFORMATION
  Report Type: Spontaneous
  Country: ES (occurrence: ES)
  Receive Date: 20130807
  Receipt Date: 20130807
  Transmission Date: 20140515
  Serious: Yes (Hospitalization)
  Sender: FDA-Public Use
  Company Number: ES-ROXANE LABORATORIES, INC.-2013-RO-01291RO

PATIENT
  Age: 47 Year
  Sex: Male

DRUGS (4)
  1. RISPERIDONE [Suspect]
     Indication: SCHIZOPHRENIA, PARANOID TYPE
     Dosage: 8 MG
  2. LORAZEPAM [Suspect]
     Dosage: 15 MG
  3. CLOZAPINE [Suspect]
     Indication: SCHIZOPHRENIA, PARANOID TYPE
     Dosage: 600 MG
  4. BIPERIDEN [Suspect]
     Dosage: 4 MG

REACTIONS (1)
  - Colitis ischaemic [Recovered/Resolved]
